FAERS Safety Report 24425039 (Version 8)
Quarter: 2025Q1

REPORT INFORMATION
  Report Type: Report from Study
  Country: US (occurrence: US)
  Receive Date: 20241010
  Receipt Date: 20250326
  Transmission Date: 20250409
  Serious: Yes (Death, Hospitalization)
  Sender: GILEAD
  Company Number: US-GILEAD-2024-0690645

PATIENT
  Age: 41 Year
  Sex: Female

DRUGS (1)
  1. AXICABTAGENE CILOLEUCEL [Suspect]
     Active Substance: AXICABTAGENE CILOLEUCEL
     Indication: Product used for unknown indication
     Route: 065

REACTIONS (7)
  - Fungal infection [Fatal]
  - Infection [Unknown]
  - Confusional state [Unknown]
  - Malaise [Not Recovered/Not Resolved]
  - Amnesia [Unknown]
  - Immune system disorder [Unknown]
  - Lung disorder [Unknown]
